FAERS Safety Report 5430330-6 (Version None)
Quarter: 2007Q3

REPORT INFORMATION
  Report Type: 
  Country: None (occurrence: None)
  Receive Date: 20070830
  Receipt Date: 20070822
  Transmission Date: 20080115
  Serious: Yes (Hospitalization)
  Sender: FDA-Public Use
  Company Number: PHBS2007JP11210

PATIENT
  Age: 63 Year
  Sex: Female
  Weight: 63 kg

DRUGS (8)
  1. ZOMETA [Suspect]
     Indication: METASTASES TO BONE
     Dosage: 4 MG, ONCE/SINGLE
     Route: 042
     Dates: start: 20070524, end: 20070524
  2. PARAPLATIN [Concomitant]
     Indication: LUNG NEOPLASM MALIGNANT
     Dosage: 300 MG, UNK
     Route: 042
     Dates: start: 20070517, end: 20070517
  3. PACLITAXEL [Concomitant]
     Indication: LUNG NEOPLASM MALIGNANT
     Dosage: 187 MG, UNK
     Route: 042
     Dates: start: 20070517, end: 20070517
  4. PRIMPERAN INJ [Concomitant]
     Indication: NAUSEA
     Dosage: 3 DF, UNK
     Route: 048
     Dates: start: 20070519, end: 20070521
  5. FAMOTIDINE [Concomitant]
     Dosage: 2 DF, UNK
     Route: 048
     Dates: start: 20070426, end: 20070618
  6. ALUMINIUM HYDROXIDE W/ MAGNESIUM HYDROXIDE [Concomitant]
     Indication: OESOPHAGITIS
     Dosage: 30 ML, UNK
     Route: 048
     Dates: start: 20070427, end: 20070618
  7. ALLOID [Concomitant]
     Indication: OESOPHAGITIS
     Dosage: 60 ML, UNK
     Route: 048
     Dates: start: 20070427, end: 20070618
  8. RADIOTHERAPY [Concomitant]
     Indication: METASTASES TO BONE
     Dates: start: 20070424, end: 20070531

REACTIONS (14)
  - ABNORMAL SENSATION IN EYE [None]
  - CARCINOEMBRYONIC ANTIGEN INCREASED [None]
  - FEBRILE NEUTROPENIA [None]
  - HAEMATOCRIT DECREASED [None]
  - HAEMOGLOBIN DECREASED [None]
  - HYPERSENSITIVITY [None]
  - NEUTROPHIL COUNT DECREASED [None]
  - PRURITUS [None]
  - PYREXIA [None]
  - RASH [None]
  - RED BLOOD CELL COUNT DECREASED [None]
  - SALIVA ALTERED [None]
  - THIRST [None]
  - WHITE BLOOD CELL COUNT DECREASED [None]
